FAERS Safety Report 5897159-6 (Version None)
Quarter: 2008Q3

REPORT INFORMATION
  Report Type: 
  Country: None (occurrence: None)
  Receive Date: 20080923
  Receipt Date: 20080911
  Transmission Date: 20090109
  Serious: Yes (Death, Hospitalization, Other)
  Sender: FDA-Public Use
  Company Number: 52362

PATIENT
  Age: 85 Year
  Sex: Female

DRUGS (1)
  1. DOBUTAMINE INJ. USP 250MG/20ML - BEDFORD LABS, INC. [Suspect]
     Indication: CARDIAC STRESS TEST
     Dosage: 40 UG/MIN

REACTIONS (9)
  - CARDIAC FAILURE CONGESTIVE [None]
  - ELECTROCARDIOGRAM ST SEGMENT ELEVATION [None]
  - ELECTROMECHANICAL DISSOCIATION [None]
  - HEART RATE INCREASED [None]
  - LEFT VENTRICLE OUTFLOW TRACT OBSTRUCTION [None]
  - PULMONARY CONGESTION [None]
  - RESUSCITATION [None]
  - STRESS CARDIOMYOPATHY [None]
  - VENTRICULAR HYPOKINESIA [None]
